FAERS Safety Report 8968246 (Version 1)
Quarter: 2012Q4

REPORT INFORMATION
  Report Type: Spontaneous
  Country: BR (occurrence: None)
  Receive Date: 20121210
  Receipt Date: 20121210
  Transmission Date: 20130627
  Serious: Yes (Other)
  Sender: FDA-Public Use
  Company Number: DSA_61054_2012

PATIENT
  Age: 58 Year
  Sex: Male

DRUGS (6)
  1. FLAGYL [Suspect]
     Indication: PSEUDOMEMBRANOUS COLITIS
     Dosage: (500 mg TID Oral) 250 mg
     Route: 048
     Dates: start: 20121014, end: 20121017
  2. MAXCEF /01263802 / UNKNOWN [Concomitant]
  3. NOVALGINA (UNKNOWN) [Concomitant]
  4. TARCEVA (UNKNOWN) [Concomitant]
  5. TRAMAL (UNKNOWN) [Concomitant]
  6. ANTAK (UNKNOWN) [Concomitant]

REACTIONS (1)
  - Neutropenia [None]
